FAERS Safety Report 7311148-6 (Version None)
Quarter: 2011Q1

REPORT INFORMATION
  Report Type: 
  Country: None (occurrence: None)
  Receive Date: 20110224
  Receipt Date: 20110211
  Transmission Date: 20110831
  Serious: Yes (Hospitalization)
  Sender: FDA-Public Use
  Company Number: NL-ROCHE-760173

PATIENT
  Sex: Male

DRUGS (7)
  1. CAPECITABINE [Suspect]
     Indication: COLORECTAL CANCER
     Route: 048
     Dates: start: 20090206, end: 20100922
  2. OXALIPLATIN [Suspect]
     Indication: COLORECTAL CANCER
     Route: 042
     Dates: start: 20110104
  3. CAPECITABINE [Suspect]
     Route: 048
     Dates: start: 20110104
  4. BEVACIZUMAB [Suspect]
     Route: 042
     Dates: start: 20110104
  5. TAMSULOSIN [Concomitant]
  6. BEVACIZUMAB [Suspect]
     Indication: COLORECTAL CANCER
     Route: 042
     Dates: start: 20090206, end: 20090922
  7. PYRIDOXINE [Concomitant]

REACTIONS (2)
  - MUCOSAL INFLAMMATION [None]
  - PYREXIA [None]
